FAERS Safety Report 5295402-8 (Version None)
Quarter: 2007Q2

REPORT INFORMATION
  Report Type: 
  Country: None (occurrence: None)
  Receive Date: 20070412
  Receipt Date: 20070404
  Transmission Date: 20071010
  Serious: Yes (Life-Threatening)
  Sender: FDA-Public Use
  Company Number: US-GENENTECH-239420

PATIENT
  Age: 37 Year
  Sex: Female

DRUGS (13)
  1. HERCEPTIN [Suspect]
     Indication: DRUG USE FOR UNKNOWN INDICATION
  2. LAPATINIB [Suspect]
     Indication: BREAST CANCER
     Dosage: 1000 MG, QD
     Route: 048
     Dates: start: 20060421, end: 20060601
  3. LAPATINIB [Suspect]
     Dosage: 75 MG, QD
     Route: 048
     Dates: start: 20060601, end: 20061201
  4. CARBOPLATIN [Suspect]
     Indication: BREAST CANCER
     Route: 042
     Dates: start: 20060421, end: 20061201
  5. PACLITAXEL [Suspect]
     Indication: BREAST CANCER
     Dosage: 60 MG/M2, UNK
     Route: 042
     Dates: start: 20060421, end: 20061117
  6. VINORELBINE [Suspect]
     Indication: DRUG USE FOR UNKNOWN INDICATION
  7. RADIOTHERAPY [Suspect]
     Indication: DRUG USE FOR UNKNOWN INDICATION
     Dates: start: 20061006, end: 20061010
  8. GABAPENTIN [Concomitant]
     Indication: DRUG USE FOR UNKNOWN INDICATION
  9. FAMOTIDINE [Concomitant]
     Indication: DRUG USE FOR UNKNOWN INDICATION
  10. ONDANSETRON [Concomitant]
     Indication: DRUG USE FOR UNKNOWN INDICATION
  11. DICYCLOMINE HCL INJ [Concomitant]
     Indication: DRUG USE FOR UNKNOWN INDICATION
  12. LOPERAMIDE HCL [Concomitant]
     Indication: DRUG USE FOR UNKNOWN INDICATION
  13. LORAZEPAM [Concomitant]
     Indication: DRUG USE FOR UNKNOWN INDICATION

REACTIONS (3)
  - LEUKOPENIA [None]
  - MYELODYSPLASTIC SYNDROME [None]
  - PANCYTOPENIA [None]
